FAERS Safety Report 8443248-1 (Version None)
Quarter: 2012Q2

REPORT INFORMATION
  Report Type: 
  Country: None (occurrence: None)
  Receive Date: 20120617
  Receipt Date: 20120605
  Transmission Date: 20120825
  Serious: Yes (Other)
  Sender: FDA-Public Use
  Company Number: US-BRISTOL-MYERS SQUIBB COMPANY-16571572

PATIENT
  Age: 2 Month
  Sex: Male
  Weight: 3 kg

DRUGS (3)
  1. MITOTANE [Suspect]
     Indication: ADRENAL GLAND CANCER METASTATIC
     Dosage: INCREASED TO 2, THEN 2.5 G/DAY DISCONTINUED AT 18 MONTHS
  2. FLUDROCORTISONE ACETATE [Suspect]
  3. HYDROCORTISONE [Suspect]

REACTIONS (5)
  - NEOPLASM MALIGNANT [None]
  - GROWTH RETARDATION [None]
  - DEVELOPMENTAL DELAY [None]
  - DECREASED APPETITE [None]
  - GYNAECOMASTIA [None]
